FAERS Safety Report 4412336-9 (Version None)
Quarter: 2004Q3

REPORT INFORMATION
  Report Type: 
  Country: None (occurrence: None)
  Receive Date: 20040728
  Receipt Date: 20040719
  Transmission Date: 20050211
  Serious: Yes (Other)
  Sender: FDA-Public Use
  Company Number: 2004224397US

PATIENT
  Age: 59 Year
  Sex: Female

DRUGS (3)
  1. PROVERA [Suspect]
     Dates: start: 19920909, end: 19970716
  2. PREMARIN [Suspect]
     Dates: start: 19920909, end: 19970816
  3. PREMPRO [Suspect]
     Dates: start: 19970716, end: 19990826

REACTIONS (2)
  - BREAST CANCER FEMALE [None]
  - BREAST CANCER STAGE II [None]
